FAERS Safety Report 25422284 (Version 2)
Quarter: 2025Q3

REPORT INFORMATION
  Report Type: Spontaneous
  Country: CN (occurrence: CN)
  Receive Date: 20250611
  Receipt Date: 20250723
  Transmission Date: 20251020
  Serious: Yes (Death, Other)
  Sender: JOHNSON AND JOHNSON
  Company Number: CN-JNJFOC-20250609236

PATIENT

DRUGS (3)
  1. APALUTAMIDE [Suspect]
     Active Substance: APALUTAMIDE
     Indication: Product used for unknown indication
     Route: 065
  2. ENZALUTAMIDE [Suspect]
     Active Substance: ENZALUTAMIDE
     Indication: Prostate cancer
     Route: 065
  3. DAROLUTAMIDE [Suspect]
     Active Substance: DAROLUTAMIDE
     Indication: Prostate cancer
     Route: 065

REACTIONS (23)
  - Death [Fatal]
  - Dermatitis exfoliative generalised [Unknown]
  - Toxic epidermal necrolysis [Unknown]
  - Myocardial infarction [Unknown]
  - Interstitial lung disease [Unknown]
  - Stevens-Johnson syndrome [Unknown]
  - Rash erythematous [Unknown]
  - Asthenia [Unknown]
  - Disease progression [Unknown]
  - Rash [Unknown]
  - Fatigue [Unknown]
  - Hot flush [Unknown]
  - Fall [Unknown]
  - Decreased appetite [Unknown]
  - Hypertension [Unknown]
  - Taste disorder [Unknown]
  - Treatment noncompliance [Unknown]
  - Dysphagia [Unknown]
  - Oedema peripheral [Unknown]
  - Balance disorder [Unknown]
  - Rash pruritic [Unknown]
  - Blood thyroid stimulating hormone increased [Unknown]
  - Rash maculo-papular [Unknown]
